FAERS Safety Report 7381484-6 (Version None)
Quarter: 2011Q1

REPORT INFORMATION
  Report Type: 
  Country: None (occurrence: None)
  Receive Date: 20110322
  Receipt Date: 20110307
  Transmission Date: 20110831
  Serious: Yes (Other)
  Sender: FDA-Public Use
  Company Number: 11-012-01

PATIENT
  Age: 54 Year
  Sex: Female
  Weight: 65 kg

DRUGS (3)
  1. DORIPENEM (NO PREF. NAME) [Suspect]
     Indication: PNEUMONIA ASPIRATION
     Dosage: 500 MG;Q8H;IV
     Route: 042
  2. DIVALPROEX SODIUM [Concomitant]
  3. VALPROATE SODIUM (NO PREF. NAME) [Suspect]
     Indication: CONVULSION
     Dosage: 1500 MG;X1;IV; 250 MG;Q8H;NGT;750 MG;X1;IV; 1000 MG;X2;IV
     Route: 042

REACTIONS (7)
  - ANTICONVULSANT DRUG LEVEL BELOW THERAPEUTIC [None]
  - CHRONIC OBSTRUCTIVE PULMONARY DISEASE [None]
  - TREATMENT NONCOMPLIANCE [None]
  - PNEUMONIA [None]
  - PNEUMONIA ASPIRATION [None]
  - DRUG INTERACTION [None]
  - CONDITION AGGRAVATED [None]
